FAERS Safety Report 4601318-X (Version None)
Quarter: 2005Q2

REPORT INFORMATION
  Report Type: 
  Country: None (occurrence: None)
  Receive Date: 20050202
  Receipt Date: 20040909
  Transmission Date: 20051028
  Serious: Yes (Other)
  Sender: FDA-Public Use
  Company Number: 10061643-C617068-0

PATIENT
  Age: 53 Year
  Sex: Female

DRUGS (2)
  1. SODIUM CHLORIDE 0.9% [Suspect]
     Indication: CELLULITIS
     Dosage: IV
     Route: 042
     Dates: start: 20040902, end: 20040902
  2. SODIUM CHLORIDE 0.9% [Suspect]
     Indication: HYPERSENSITIVITY
     Dosage: IV
     Route: 042
     Dates: start: 20040902, end: 20040902

REACTIONS (2)
  - INJECTION SITE IRRITATION [None]
  - INJECTION SITE PAIN [None]
